FAERS Safety Report 6883593-4 (Version None)
Quarter: 2010Q3

REPORT INFORMATION
  Report Type: 
  Country: None (occurrence: None)
  Receive Date: 20100727
  Receipt Date: 20100721
  Transmission Date: 20110219
  Serious: Yes (Other)
  Sender: FDA-Public Use
  Company Number: AMI0023079

PATIENT
  Age: 72 Year
  Sex: Male

DRUGS (5)
  1. TIMOPTIC-XE [Suspect]
     Indication: GLAUCOMA
     Dosage: 2 DROPS Q.D. 046
     Dates: start: 20020101, end: 20100501
  2. DORZOLAMIDE HYDROCHLORIDE AND TIMOLOL MALEATE [Suspect]
     Indication: GLAUCOMA
     Dosage: 046
     Dates: start: 20100501
  3. ARTICAINE / EPINEPHRINE COMBINATION INJECTABLE [Suspect]
     Indication: DENTAL CARE
     Dosage: ONCE, 004
     Dates: start: 20100523
  4. BISOPROL [Concomitant]
  5. ENALAPRIL MALEATE [Concomitant]

REACTIONS (3)
  - BLINDNESS UNILATERAL [None]
  - HYPOAESTHESIA [None]
  - RETINAL VEIN OCCLUSION [None]
